FAERS Safety Report 10164965 (Version 2)
Quarter: 2014Q2

REPORT INFORMATION
  Report Type: Spontaneous
  Country: US (occurrence: US)
  Receive Date: 20140510
  Receipt Date: 20140510
  Transmission Date: 20141212
  Serious: Yes (Other)
  Sender: FDA-Public Use
  Company Number: US-BRISTOL-MYERS SQUIBB COMPANY-19639574

PATIENT
  Age: 57 Year
  Sex: Female

DRUGS (7)
  1. BYDUREON [Suspect]
     Indication: TYPE 2 DIABETES MELLITUS
     Route: 058
     Dates: start: 201307
  2. GLUCOPHAGE [Concomitant]
  3. METOPROLOL [Concomitant]
  4. LEVOTHYROXINE [Concomitant]
  5. GLIMEPIRIDE [Concomitant]
  6. NORVASC [Concomitant]
  7. CRESTOR [Concomitant]

REACTIONS (2)
  - Wheezing [Recovering/Resolving]
  - Urticaria [Recovering/Resolving]
